FAERS Safety Report 9362891 (Version 3)
Quarter: 2014Q3

REPORT INFORMATION
  Report Type: Report from Study
  Country: FR (occurrence: FR)
  Receive Date: 20130624
  Receipt Date: 20140917
  Transmission Date: 20150326
  Serious: Yes (Death)
  Sender: FDA-Public Use
  Company Number: FR-ROCHE-1240395

PATIENT
  Age: 87 Year
  Sex: Female
  Weight: 50 kg

DRUGS (9)
  1. TOCILIZUMAB [Suspect]
     Active Substance: TOCILIZUMAB
     Dosage: 8 MG/KG.
     Route: 041
     Dates: start: 20120906
  2. TOCILIZUMAB [Suspect]
     Active Substance: TOCILIZUMAB
     Dosage: 8 MG/KG.
     Route: 041
     Dates: start: 20121008
  3. METHOTREXATE [Concomitant]
     Active Substance: METHOTREXATE
     Route: 065
  4. TOCILIZUMAB [Suspect]
     Active Substance: TOCILIZUMAB
     Indication: RHEUMATOID ARTHRITIS
     Dosage: 8 MG/KG.
     Route: 041
     Dates: start: 20120604
  5. TOCILIZUMAB [Suspect]
     Active Substance: TOCILIZUMAB
     Dosage: 8 MG/KG.
     Route: 041
     Dates: start: 20120802
  6. TOCILIZUMAB [Suspect]
     Active Substance: TOCILIZUMAB
     Dosage: 8 MG/KG.?, , , AND
     Route: 041
     Dates: start: 20121217
  7. TOCILIZUMAB [Suspect]
     Active Substance: TOCILIZUMAB
     Dosage: 8 MG/KG.
     Route: 041
     Dates: start: 20120702
  8. TOCILIZUMAB [Suspect]
     Active Substance: TOCILIZUMAB
     Dosage: 8 MG/KG.
     Route: 041
     Dates: start: 20121119
  9. MOPRAL [Concomitant]
     Active Substance: OMEPRAZOLE SODIUM
     Route: 065

REACTIONS (1)
  - Death [Fatal]
